FAERS Safety Report 10363555 (Version 2)
Quarter: 2014Q3

REPORT INFORMATION
  Report Type: Report from Study
  Country: NZ (occurrence: NZ)
  Receive Date: 20140805
  Receipt Date: 20140903
  Transmission Date: 20150326
  Serious: Yes (Death, Other)
  Sender: FDA-Public Use
  Company Number: PHHY2014NZ095980

PATIENT
  Age: 54 Year
  Sex: Female

DRUGS (3)
  1. CLOZARIL [Suspect]
     Active Substance: CLOZAPINE
     Indication: SCHIZOPHRENIA
     Dosage: UNK
     Route: 048
     Dates: start: 20100816
  2. CLOZARIL [Suspect]
     Active Substance: CLOZAPINE
     Dosage: 250 MG, NOCTE
     Route: 048
     Dates: start: 201008
  3. BENZTROPINE [Suspect]
     Active Substance: BENZTROPINE
     Indication: SALIVARY HYPERSECRETION
     Dosage: 2 MG, NOCTE
     Route: 048
     Dates: start: 201008

REACTIONS (2)
  - Sudden death [Fatal]
  - Fall [Unknown]

NARRATIVE: CASE EVENT DATE: 20140803
